FAERS Safety Report 17970234 (Version 3)
Quarter: 2021Q3

REPORT INFORMATION
  Report Type: Spontaneous
  Country: US (occurrence: US)
  Receive Date: 20200702
  Receipt Date: 20210702
  Transmission Date: 20211014
  Serious: Yes (Other)
  Sender: FDA-Public Use
  Company Number: US-TAKEDA-2020TUS028515

PATIENT
  Age: 19 Year
  Sex: Female

DRUGS (2)
  1. ALUNBRIG [Suspect]
     Active Substance: BRIGATINIB
     Indication: ACOUSTIC NEUROMA
     Dosage: 180 MILLIGRAM, QD
     Route: 065
     Dates: start: 202006, end: 20210623
  2. ALUNBRIG [Suspect]
     Active Substance: BRIGATINIB
     Indication: NEUROFIBROMATOSIS
     Dosage: 90 MILLIGRAM
     Route: 065
     Dates: start: 20200630

REACTIONS (2)
  - Off label use [Unknown]
  - Neurofibromatosis [Unknown]

NARRATIVE: CASE EVENT DATE: 20200630
